FAERS Safety Report 5816143-1 (Version None)
Quarter: 2008Q3

REPORT INFORMATION
  Report Type: 
  Country: None (occurrence: None)
  Receive Date: 20080721
  Receipt Date: 20080714
  Transmission Date: 20090109
  Serious: Yes (Other)
  Sender: FDA-Public Use
  Company Number: HU-AVENTIS-200816558GDDC

PATIENT
  Age: 48 Year
  Sex: Male

DRUGS (1)
  1. LEFLUNOMIDE [Suspect]
     Route: 048
     Dates: start: 20070102

REACTIONS (1)
  - HEPATOTOXICITY [None]
